FAERS Safety Report 12677414 (Version 2)
Quarter: 2016Q3

REPORT INFORMATION
  Report Type: Spontaneous
  Country: US (occurrence: US)
  Receive Date: 20160823
  Receipt Date: 20160919
  Transmission Date: 20161109
  Serious: Yes (Hospitalization)
  Sender: FDA-Public Use
  Company Number: US-AMWAY-2016AMY00065

PATIENT
  Sex: Male

DRUGS (1)
  1. GLISTER MULTI-ACTION FLUORIDE TOOTHPASTE [Suspect]
     Active Substance: SODIUM FLUORIDE

REACTIONS (4)
  - Weight decreased [Unknown]
  - Hyperhidrosis [Unknown]
  - Decreased appetite [Unknown]
  - Tremor [Unknown]
